FAERS Safety Report 20141165 (Version 1)
Quarter: 2021Q4

REPORT INFORMATION
  Report Type: Spontaneous
  Country: US (occurrence: None)
  Receive Date: 20211202
  Receipt Date: 20211202
  Transmission Date: 20220303
  Serious: Yes (Disabling)
  Sender: FDA-Public Use
  Company Number: None

PATIENT
  Age: 62 Year
  Sex: Male
  Weight: 73.94 kg

DRUGS (7)
  1. DUPIXENT [Suspect]
     Active Substance: DUPILUMAB
     Indication: Eczema
     Dosage: OTHER FREQUENCY : 2 INJ. PER MONTH;?
     Route: 058
  2. NIFEDIPINE [Concomitant]
     Active Substance: NIFEDIPINE
  3. METOPROLOL TARTRATE [Concomitant]
     Active Substance: METOPROLOL TARTRATE
  4. BENAZEPRIL [Concomitant]
     Active Substance: BENAZEPRIL HYDROCHLORIDE
  5. TEGRETOL [Concomitant]
     Active Substance: CARBAMAZEPINE
  6. JARDIANCE [Concomitant]
     Active Substance: EMPAGLIFLOZIN
  7. Asperin 81mg [Concomitant]

REACTIONS (5)
  - Blindness unilateral [None]
  - Visual impairment [None]
  - Therapy cessation [None]
  - Asthenopia [None]
  - Cataract [None]

NARRATIVE: CASE EVENT DATE: 20200416
